FAERS Safety Report 7153530-6 (Version None)
Quarter: 2010Q4

REPORT INFORMATION
  Report Type: 
  Country: None (occurrence: None)
  Receive Date: 20101209
  Receipt Date: 20101209
  Transmission Date: 20110411
  Serious: Yes (Life-Threatening, Other)
  Sender: FDA-Public Use
  Company Number: None

PATIENT
  Age: 6 Month
  Sex: Male
  Weight: 7.2576 kg

DRUGS (1)
  1. TEETHING TABLETS HOMEOPATHIC - NO STRENGTH IND.HYLAND'S [Suspect]
     Indication: TEETHING
     Dosage: 2-3 TABS 4X PER DAY SL
     Route: 060
     Dates: start: 20101001, end: 20101208

REACTIONS (4)
  - FLUSHING [None]
  - HYPOVENTILATION [None]
  - PRODUCT QUALITY ISSUE [None]
  - RASH [None]
